FAERS Safety Report 12998647 (Version 1)
Quarter: 2016Q4

REPORT INFORMATION
  Report Type: Report from Study
  Country: None (occurrence: CA)
  Receive Date: 20161205
  Receipt Date: 20161205
  Transmission Date: 20170207
  Serious: Yes (Hospitalization, Other)
  Sender: FDA-Public Use
  Company Number: CA-ABBVIE-16K-028-1791454-00

PATIENT
  Age: 62 Year
  Sex: Female

DRUGS (1)
  1. HUMIRA [Suspect]
     Active Substance: ADALIMUMAB
     Indication: RHEUMATOID ARTHRITIS
     Route: 058
     Dates: start: 20080615, end: 20160805

REACTIONS (7)
  - Pyrexia [Unknown]
  - Hyperhidrosis [Unknown]
  - Lymphadenopathy [Unknown]
  - Lymphoproliferative disorder [Unknown]
  - Hodgkin^s disease mixed cellularity stage unspecified [Unknown]
  - Lymphoma [Not Recovered/Not Resolved]
  - Chills [Unknown]

NARRATIVE: CASE EVENT DATE: 201604
